FAERS Safety Report 19144117 (Version 2)
Quarter: 2022Q1

REPORT INFORMATION
  Report Type: Spontaneous
  Country: US (occurrence: US)
  Receive Date: 20210416
  Receipt Date: 20220310
  Transmission Date: 20220423
  Serious: No
  Sender: FDA-Public Use
  Company Number: US-TERSERA THERAPEUTICS LLC-2021TRS000660

PATIENT

DRUGS (2)
  1. XERMELO [Suspect]
     Active Substance: TELOTRISTAT ETHYL
     Indication: Carcinoid syndrome
     Dosage: 250 MG, TID
     Route: 065
     Dates: start: 20210215
  2. LANREOTIDE [Concomitant]
     Active Substance: LANREOTIDE
     Indication: Product used for unknown indication
     Dosage: UNK UNK, MONTHLY
     Route: 065

REACTIONS (8)
  - Constipation [Recovered/Resolved]
  - Defaecation urgency [Recovered/Resolved]
  - Flushing [Recovering/Resolving]
  - Neoplasm [Recovered/Resolved]
  - Rash macular [Recovered/Resolved]
  - Frequent bowel movements [Recovering/Resolving]
  - Diarrhoea [Unknown]
  - Nausea [Recovered/Resolved]

NARRATIVE: CASE EVENT DATE: 20210301
